FAERS Safety Report 18751598 (Version 3)
Quarter: 2021Q4

REPORT INFORMATION
  Report Type: Report from Study
  Country: AR (occurrence: AR)
  Receive Date: 20210118
  Receipt Date: 20211019
  Transmission Date: 20220303
  Serious: Yes (Other)
  Sender: FDA-Public Use
  Company Number: NVSC2021AR008329

PATIENT
  Sex: Male

DRUGS (9)
  1. EXFORGE [Suspect]
     Active Substance: AMLODIPINE BESYLATE\VALSARTAN
     Indication: Blood pressure abnormal
     Dosage: 1 DF, QD 5/160 MG (MORE THAN 15 YEARS AGO) (STOPPED 2 MONTH AGO)
     Route: 065
  2. DIOVAN [Suspect]
     Active Substance: VALSARTAN
     Indication: Blood pressure abnormal
     Dosage: UNK
     Route: 065
  3. ATORVASTATIN [Concomitant]
     Active Substance: ATORVASTATIN
     Indication: Cyst
     Dosage: (STARTED YEARS AGO)
     Route: 065
  4. ATORVASTATIN [Concomitant]
     Active Substance: ATORVASTATIN
     Indication: Blood cholesterol increased
  5. FENOFIBRATE [Concomitant]
     Active Substance: FENOFIBRATE
     Indication: Cyst
     Dosage: 1 DF, QHS (AT NIGHT)
     Route: 065
  6. FENOFIBRATE [Concomitant]
     Active Substance: FENOFIBRATE
     Indication: Blood cholesterol increased
  7. LEVOTHYROXINE [Concomitant]
     Active Substance: LEVOTHYROXINE
     Indication: Thyroid disorder
     Dosage: 75 MG, QD (IN THE MORNING)
     Route: 065
  8. ISLOTIN [Concomitant]
     Indication: Product used for unknown indication
     Dosage: 500 MG, QHS
     Route: 065
  9. HEMAX [Concomitant]
     Indication: Product used for unknown indication
     Dosage: 4000 IU
     Route: 065

REACTIONS (5)
  - Arrhythmia [Not Recovered/Not Resolved]
  - Intestinal polyp [Unknown]
  - Renal disorder [Not Recovered/Not Resolved]
  - Anaemia [Unknown]
  - Constipation [Unknown]
